FAERS Safety Report 10353916 (Version 1)
Quarter: 2014Q3

REPORT INFORMATION
  Report Type: Spontaneous
  Country: US (occurrence: None)
  Receive Date: 20140729
  Receipt Date: 20140729
  Transmission Date: 20150326
  Serious: Yes (Other)
  Sender: FDA-Public Use
  Company Number: None

PATIENT
  Age: 73 Year
  Sex: Female

DRUGS (1)
  1. FORTEO [Suspect]
     Active Substance: TERIPARATIDE
     Indication: SENILE OSTEOPOROSIS
     Dosage: FORTEO 1 DAY SUBCUTANEOUS 057 INJECTABLE
     Route: 058
     Dates: start: 20140504

REACTIONS (2)
  - Laziness [None]
  - Fatigue [None]

NARRATIVE: CASE EVENT DATE: 20140504
